FAERS Safety Report 6064479-4 (Version None)
Quarter: 2009Q1

REPORT INFORMATION
  Report Type: 
  Country: None (occurrence: None)
  Receive Date: 20090203
  Receipt Date: 20090203
  Transmission Date: 20090719
  Serious: No
  Sender: FDA-Public Use
  Company Number: None

PATIENT
  Sex: Male
  Weight: 92.5338 kg

DRUGS (5)
  1. CHANTIX [Suspect]
     Indication: SMOKING CESSATION THERAPY
     Dosage: 1 TABLET TWICE DAILY PO
     Route: 048
     Dates: start: 20081001, end: 20081007
  2. DOCUSATE [Concomitant]
  3. VANCOMYCIN [Concomitant]
  4. ACETAMINOPHEN AND HYDROCODONE BITARTRATE [Concomitant]
  5. METOCLOPRAMIDE [Concomitant]

REACTIONS (4)
  - ARTHRALGIA [None]
  - CELLULITIS [None]
  - INSOMNIA [None]
  - JOINT SWELLING [None]
